FAERS Safety Report 9259109 (Version 1)
Quarter: 2013Q2

REPORT INFORMATION
  Report Type: Spontaneous
  Country: FR (occurrence: FR)
  Receive Date: 20130426
  Receipt Date: 20130426
  Transmission Date: 20140414
  Serious: Yes (Hospitalization)
  Sender: FDA-Public Use
  Company Number: FR-PFIZER INC-2013126275

PATIENT
  Age: 88 Year
  Sex: Female

DRUGS (14)
  1. LYRICA [Suspect]
     Indication: PAIN
     Dosage: 25 MG, 1X/DAY
     Route: 048
     Dates: start: 20130312, end: 20130313
  2. LYRICA [Suspect]
     Dosage: 50 MG, 1X/DAY
     Route: 048
     Dates: start: 20130314, end: 20130315
  3. LYRICA [Suspect]
     Dosage: 50 MG, 2X/DAY
     Route: 048
     Dates: start: 20130316, end: 20130319
  4. LYRICA [Suspect]
     Dosage: 25 MG IN THE MORNING, 50 MG IN THE EVENING
     Route: 048
     Dates: start: 20130320, end: 20130325
  5. APROVEL [Concomitant]
     Dosage: 300 MG, 1X/DAY
  6. COUMADINE [Concomitant]
     Dosage: 1 MG, 1X/DAY
  7. SOTALOL [Concomitant]
     Dosage: 80 MG, 2X/DAY
  8. LASILIX [Concomitant]
     Dosage: 20 MG, 1X/DAY
  9. ZYLORIC [Concomitant]
     Dosage: 200 MG, 1X/DAY
  10. SERESTA [Concomitant]
     Dosage: 10 MG, 1X/DAY
  11. TARDYFERON [Concomitant]
     Dosage: 80 MG, 1X/DAY
  12. INEXIUM [Concomitant]
     Dosage: 20 MG, 1X/DAY
  13. TRAMADOL HYDROCHLORIDE [Concomitant]
     Dosage: 1 DF, 1X/DAY
     Dates: end: 20130316
  14. DOLIPRANE [Concomitant]
     Dosage: UNK

REACTIONS (3)
  - Hallucination [Recovered/Resolved]
  - Oedema peripheral [Recovered/Resolved]
  - Arrhythmia [Recovered/Resolved]
